FAERS Safety Report 26172965 (Version 1)
Quarter: 2025Q4

REPORT INFORMATION
  Report Type: Report from Study
  Country: US (occurrence: US)
  Receive Date: 20251218
  Receipt Date: 20251218
  Transmission Date: 20260117
  Serious: No
  Sender: BIOVITRUM
  Company Number: US-BIOVITRUM-2025-US-017375

PATIENT
  Age: 36 Year
  Sex: Female

DRUGS (2)
  1. DOPTELET [Suspect]
     Active Substance: AVATROMBOPAG MALEATE
     Indication: Product used for unknown indication
     Dosage: DAILY
     Route: 048
  2. DOPTELET [Suspect]
     Active Substance: AVATROMBOPAG MALEATE
     Dosage: ALTERNATING BETWEEN 20MG AND 40MG ON SOME DAYS
     Route: 048

REACTIONS (1)
  - Heart rate increased [Unknown]
